FAERS Safety Report 5516800-0 (Version None)
Quarter: 2007Q4

REPORT INFORMATION
  Report Type: 
  Country: None (occurrence: None)
  Receive Date: 20071114
  Receipt Date: 20071102
  Transmission Date: 20080405
  Serious: Yes (Hospitalization)
  Sender: FDA-Public Use
  Company Number: HQWYE309310FEB03

PATIENT
  Sex: Female

DRUGS (2)
  1. PREMPRO [Suspect]
     Dosage: UNSPECIFIED
     Route: 048
  2. PREMARIN [Suspect]

REACTIONS (14)
  - ABDOMINAL PAIN [None]
  - ALOPECIA [None]
  - BREAST ENLARGEMENT [None]
  - BREAST TENDERNESS [None]
  - CERVICAL DISCHARGE [None]
  - CERVICAL DYSPLASIA [None]
  - DEPRESSION [None]
  - DIZZINESS [None]
  - FLUID RETENTION [None]
  - MIGRAINE [None]
  - MUSCLE SPASMS [None]
  - NAUSEA [None]
  - OCULAR ICTERUS [None]
  - VULVOVAGINAL MYCOTIC INFECTION [None]
